FAERS Safety Report 23280924 (Version 9)
Quarter: 2025Q3

REPORT INFORMATION
  Report Type: Report from Study
  Country: CA (occurrence: CA)
  Receive Date: 20231211
  Receipt Date: 20250930
  Transmission Date: 20251020
  Serious: Yes (Hospitalization)
  Sender: TAKEDA
  Company Number: CA-TAKEDA-2023TUS117745

PATIENT
  Age: 35 Year
  Sex: Male

DRUGS (17)
  1. VEDOLIZUMAB [Suspect]
     Active Substance: VEDOLIZUMAB
     Indication: Crohn^s disease
  2. VEDOLIZUMAB [Suspect]
     Active Substance: VEDOLIZUMAB
     Dosage: 300 MILLIGRAM, Q4WEEKS
     Dates: start: 20210326
  3. VEDOLIZUMAB [Suspect]
     Active Substance: VEDOLIZUMAB
  4. VEDOLIZUMAB [Suspect]
     Active Substance: VEDOLIZUMAB
  5. VEDOLIZUMAB [Suspect]
     Active Substance: VEDOLIZUMAB
  6. VEDOLIZUMAB [Suspect]
     Active Substance: VEDOLIZUMAB
  7. VEDOLIZUMAB [Suspect]
     Active Substance: VEDOLIZUMAB
  8. VEDOLIZUMAB [Suspect]
     Active Substance: VEDOLIZUMAB
     Dosage: 300 MILLIGRAM, Q4WEEKS
     Dates: start: 20250703
  9. PANTOPRAZOLE SODIUM [Suspect]
     Active Substance: PANTOPRAZOLE SODIUM
     Indication: Product used for unknown indication
  10. BUTRANS [Concomitant]
     Active Substance: BUPRENORPHINE
  11. CODEINE [Concomitant]
     Active Substance: CODEINE
  12. PERCOCET [Concomitant]
     Active Substance: ACETAMINOPHEN\OXYCODONE HYDROCHLORIDE
  13. BUTYLSCOPOLAMINE BROMIDE [Concomitant]
     Active Substance: BUTYLSCOPOLAMINE BROMIDE
  14. VITAMIN B12 [Concomitant]
     Active Substance: CYANOCOBALAMIN
  15. VITAMIN D [Concomitant]
     Active Substance: VITAMIN D NOS
  16. VALTREX [Concomitant]
     Active Substance: VALACYCLOVIR HYDROCHLORIDE
  17. CANNABIS SATIVA SUBSP. INDICA TOP [Concomitant]
     Active Substance: CANNABIS SATIVA SUBSP. INDICA TOP

REACTIONS (9)
  - Suspected COVID-19 [Recovering/Resolving]
  - Influenza [Recovering/Resolving]
  - Viral infection [Unknown]
  - Throat irritation [Unknown]
  - Rhinorrhoea [Unknown]
  - Nasopharyngitis [Recovered/Resolved]
  - Nasal congestion [Recovered/Resolved]
  - Cough [Recovered/Resolved]
  - Fatigue [Recovered/Resolved]

NARRATIVE: CASE EVENT DATE: 20241223
